FAERS Safety Report 4813463-4 (Version None)
Quarter: 2005Q4

REPORT INFORMATION
  Report Type: 
  Country: None (occurrence: None)
  Receive Date: 20051028
  Receipt Date: 20050214
  Transmission Date: 20060501
  Serious: No
  Sender: FDA-Public Use
  Company Number: US-GLAXOSMITHKLINE-A0545496A

PATIENT
  Age: 77 Year
  Sex: Male

DRUGS (3)
  1. ADVAIR DISKUS 100/50 [Suspect]
     Dosage: 1PUFF TWICE PER DAY
     Route: 055
  2. ARTHRITIS MEDICATION [Concomitant]
  3. ZOCOR [Concomitant]

REACTIONS (2)
  - DRUG INEFFECTIVE [None]
  - DYSGEUSIA [None]
